FAERS Safety Report 16405958 (Version 4)
Quarter: 2020Q4

REPORT INFORMATION
  Report Type: Spontaneous
  Country: US (occurrence: US)
  Receive Date: 20190607
  Receipt Date: 20201208
  Transmission Date: 20210113
  Serious: Yes (Other)
  Sender: FDA-Public Use
  Company Number: US-ASTRAZENECA-2018SF00384

PATIENT
  Age: 13364 Day
  Sex: Male

DRUGS (32)
  1. NEXIUM 24HR [Suspect]
     Active Substance: ESOMEPRAZOLE MAGNESIUM
     Indication: GASTROOESOPHAGEAL REFLUX DISEASE
     Route: 048
     Dates: start: 201403, end: 201604
  2. LANTUS [Concomitant]
     Active Substance: INSULIN GLARGINE
  3. NIFEDIPINE. [Concomitant]
     Active Substance: NIFEDIPINE
  4. ATORVASTATIN [Concomitant]
     Active Substance: ATORVASTATIN
     Indication: BLOOD CHOLESTEROL INCREASED
     Dates: start: 20181020, end: 20181118
  5. CYCLOBENZAPRINE. [Concomitant]
     Active Substance: CYCLOBENZAPRINE
     Indication: PAIN
     Dates: start: 20170207, end: 20171108
  6. ASPIRIN. [Concomitant]
     Active Substance: ASPIRIN
     Indication: PAIN
     Dates: start: 20130517, end: 20130523
  7. PRILOSEC OTC [Suspect]
     Active Substance: OMEPRAZOLE MAGNESIUM
     Indication: GASTROOESOPHAGEAL REFLUX DISEASE
     Route: 048
     Dates: start: 20040101, end: 20100101
  8. ZANTAC [Concomitant]
     Active Substance: RANITIDINE HYDROCHLORIDE
     Dosage: 150
     Dates: start: 2006, end: 2007
  9. IBUPROFEN. [Concomitant]
     Active Substance: IBUPROFEN
  10. GABAPENTIN. [Concomitant]
     Active Substance: GABAPENTIN
     Indication: PAIN
     Dates: start: 20180227, end: 20180927
  11. CYCLOBENZAPRINE. [Concomitant]
     Active Substance: CYCLOBENZAPRINE
     Indication: MUSCULOSKELETAL STIFFNESS
     Dates: start: 20170207, end: 20171108
  12. PRILOSEC [Suspect]
     Active Substance: OMEPRAZOLE MAGNESIUM
     Indication: GASTROOESOPHAGEAL REFLUX DISEASE
     Dosage: GENERIC
     Route: 065
     Dates: start: 20111012
  13. CINACALCET. [Concomitant]
     Active Substance: CINACALCET
  14. AMITRIPTYLINE [Concomitant]
     Active Substance: AMITRIPTYLINE
     Indication: DEPRESSION
     Dates: start: 20180314, end: 20181118
  15. ACETAMINOPHEN. [Concomitant]
     Active Substance: ACETAMINOPHEN
     Indication: PAIN
     Dates: start: 20130507, end: 20140310
  16. NITROGLYCERINE [Concomitant]
     Active Substance: NITROGLYCERIN
  17. SIMVASTATIN. [Concomitant]
     Active Substance: SIMVASTATIN
  18. CARVEDILOL. [Concomitant]
     Active Substance: CARVEDILOL
  19. RENVELA [Concomitant]
     Active Substance: SEVELAMER CARBONATE
  20. GABAPENTIN. [Concomitant]
     Active Substance: GABAPENTIN
     Indication: SEIZURE
     Dates: start: 20180227, end: 20180927
  21. ASPIRIN. [Concomitant]
     Active Substance: ASPIRIN
     Indication: PAIN
     Dates: start: 20130317, end: 20130523
  22. RANITIDINE. [Concomitant]
     Active Substance: RANITIDINE
     Dates: start: 20151012, end: 20181118
  23. COUMADIN [Concomitant]
     Active Substance: WARFARIN SODIUM
  24. PRILOSEC [Suspect]
     Active Substance: OMEPRAZOLE MAGNESIUM
     Indication: GASTROOESOPHAGEAL REFLUX DISEASE
     Dosage: GENERIC
     Route: 065
     Dates: start: 20000101, end: 20110101
  25. METOPROLOL. [Concomitant]
     Active Substance: METOPROLOL
     Indication: HYPERTENSION
  26. XYLOCAINE [Concomitant]
     Active Substance: LIDOCAINE HYDROCHLORIDE
  27. PRILOSEC [Suspect]
     Active Substance: OMEPRAZOLE MAGNESIUM
     Indication: GASTROOESOPHAGEAL REFLUX DISEASE
     Route: 048
     Dates: start: 20130829
  28. PRILOSEC [Suspect]
     Active Substance: OMEPRAZOLE MAGNESIUM
     Indication: GASTROOESOPHAGEAL REFLUX DISEASE
     Route: 048
     Dates: start: 2000, end: 2010
  29. PRILOSEC OTC [Suspect]
     Active Substance: OMEPRAZOLE MAGNESIUM
     Indication: GASTROOESOPHAGEAL REFLUX DISEASE
     Route: 048
     Dates: start: 2000, end: 2010
  30. NOVOLOG [Concomitant]
     Active Substance: INSULIN ASPART
  31. AZITHROMYCIN ANHYDROUS. [Concomitant]
     Active Substance: AZITHROMYCIN ANHYDROUS
  32. APRESOLINE HYDROCHLORIDE [Concomitant]
     Active Substance: HYDRALAZINE HYDROCHLORIDE

REACTIONS (10)
  - Hyperparathyroidism secondary [Unknown]
  - End stage renal disease [Not Recovered/Not Resolved]
  - Tubulointerstitial nephritis [Unknown]
  - Renal failure [Unknown]
  - Acute kidney injury [Not Recovered/Not Resolved]
  - Gastrooesophageal reflux disease [Not Recovered/Not Resolved]
  - Chronic kidney disease [Not Recovered/Not Resolved]
  - Renal injury [Unknown]
  - Nephrogenic anaemia [Unknown]
  - Dyspepsia [Unknown]

NARRATIVE: CASE EVENT DATE: 20120221
